FAERS Safety Report 13428631 (Version 2)
Quarter: 2017Q2

REPORT INFORMATION
  Report Type: Spontaneous
  Country: AU (occurrence: AU)
  Receive Date: 20170411
  Receipt Date: 20170425
  Transmission Date: 20170830
  Serious: Yes (Death, Other)
  Sender: FDA-Public Use
  Company Number: AU-BRISTOL-MYERS SQUIBB COMPANY-BMS-2017-030226

PATIENT
  Age: 61 Year
  Weight: 74 kg

DRUGS (1)
  1. OPDIVO [Suspect]
     Active Substance: NIVOLUMAB
     Indication: NON-SMALL CELL LUNG CANCER
     Dosage: 222 MG, UNK
     Route: 065
     Dates: start: 20170104

REACTIONS (1)
  - Death [Fatal]

NARRATIVE: CASE EVENT DATE: 20170404
